FAERS Safety Report 8911335 (Version 2)
Quarter: 2013Q4

REPORT INFORMATION
  Report Type: Spontaneous
  Country: US (occurrence: US)
  Receive Date: 20121116
  Receipt Date: 20131217
  Transmission Date: 20140711
  Serious: No
  Sender: FDA-Public Use
  Company Number: US-GLAXOSMITHKLINE-A0997725A

PATIENT
  Sex: Male

DRUGS (1)
  1. VOTRIENT [Suspect]
     Indication: BONE CANCER
     Dosage: 200MG TWICE PER DAY
     Route: 048

REACTIONS (3)
  - Malaise [Unknown]
  - Influenza [Unknown]
  - Discomfort [Unknown]
